FAERS Safety Report 7020831-1 (Version None)
Quarter: 2010Q3

REPORT INFORMATION
  Report Type: 
  Country: None (occurrence: None)
  Receive Date: 20100929
  Receipt Date: 20100917
  Transmission Date: 20110219
  Serious: Yes (Death)
  Sender: FDA-Public Use
  Company Number: FR-PFIZER INC-2010117897

PATIENT

DRUGS (1)
  1. SUTENT [Suspect]

REACTIONS (1)
  - PERICARDIAL HAEMORRHAGE [None]
